FAERS Safety Report 5562857-0 (Version None)
Quarter: 2007Q4

REPORT INFORMATION
  Report Type: 
  Country: None (occurrence: None)
  Receive Date: 20071217
  Receipt Date: 20071107
  Transmission Date: 20080405
  Serious: Yes (Other)
  Sender: FDA-Public Use
  Company Number: US-JNJFOC-20071103505

PATIENT
  Age: 39 Year
  Sex: Male

DRUGS (4)
  1. ULTRAM ER [Suspect]
     Indication: ABDOMINAL PAIN
     Route: 048
  2. TRAMADOL HCL [Suspect]
     Indication: ABDOMINAL PAIN
     Route: 048
  3. AMBIEN [Concomitant]
     Indication: SLEEP DISORDER
     Route: 065
  4. SSRI [Concomitant]
     Indication: DEPRESSION
     Route: 065

REACTIONS (1)
  - ERYTHEMA MULTIFORME [None]
